APPROVED DRUG PRODUCT: LYBREL
Active Ingredient: ETHINYL ESTRADIOL; LEVONORGESTREL
Strength: 0.02MG;0.09MG **Federal Register determination that product was not discontinued or withdrawn for safety or effectiveness reasons**
Dosage Form/Route: TABLET;ORAL
Application: N021864 | Product #001
Applicant: WYETH PHARMACEUTICALS INC
Approved: May 22, 2007 | RLD: Yes | RS: No | Type: DISCN